FAERS Safety Report 22021724 (Version 1)
Quarter: 2023Q1

REPORT INFORMATION
  Report Type: Spontaneous
  Country: US (occurrence: None)
  Receive Date: 20230220
  Receipt Date: 20230220
  Transmission Date: 20230417
  Serious: Yes (Hospitalization)
  Sender: FDA-Public Use
  Company Number: None

PATIENT
  Age: 51 Year
  Sex: Female

DRUGS (2)
  1. AMBRISENTAN [Suspect]
     Active Substance: AMBRISENTAN
     Indication: Pulmonary arterial hypertension
     Dosage: FREQUENCY : DAILY;?
     Route: 048
     Dates: start: 202206
  2. ORENITRAM [Suspect]
     Active Substance: TREPROSTINIL

REACTIONS (3)
  - Pneumonia [None]
  - Incorrect dose administered [None]
  - Product dose omission issue [None]

NARRATIVE: CASE EVENT DATE: 20230206
